FAERS Safety Report 20011458 (Version 1)
Quarter: 2021Q4

REPORT INFORMATION
  Report Type: Spontaneous
  Country: US (occurrence: US)
  Receive Date: 20211029
  Receipt Date: 20211029
  Transmission Date: 20220303
  Serious: Yes (Hospitalization)
  Sender: FDA-Public Use
  Company Number: US-ACCORD-243616

PATIENT
  Sex: Male
  Weight: 77.11 kg

DRUGS (1)
  1. FINASTERIDE [Suspect]
     Active Substance: FINASTERIDE
     Indication: Product used for unknown indication
     Dosage: ONCE DAILY
     Dates: start: 202101, end: 202107

REACTIONS (11)
  - Infection [Unknown]
  - Platelet count decreased [Unknown]
  - White blood cell count increased [Unknown]
  - Paraesthesia [Unknown]
  - Burning sensation [Unknown]
  - Spleen disorder [Unknown]
  - Insomnia [Unknown]
  - Tremor [Unknown]
  - Chills [Unknown]
  - Toxicity to various agents [Unknown]
  - Judgement impaired [Unknown]
